FAERS Safety Report 25926772 (Version 1)
Quarter: 2025Q4

REPORT INFORMATION
  Report Type: Spontaneous
  Country: US (occurrence: US)
  Receive Date: 20251015
  Receipt Date: 20251015
  Transmission Date: 20260118
  Serious: No
  Sender: INSUD PHARMA
  Company Number: US-INSUD PHARMA-2510US08279

PATIENT

DRUGS (1)
  1. NORETHINDRONE [Suspect]
     Active Substance: NORETHINDRONE
     Indication: Contraception
     Dosage: UNK
     Route: 048

REACTIONS (5)
  - Dermatitis allergic [Unknown]
  - Rosacea [Unknown]
  - Skin disorder [Unknown]
  - Sensitive skin [Unknown]
  - Product substitution issue [Unknown]
